FAERS Safety Report 4615462-4 (Version None)
Quarter: 2005Q2

REPORT INFORMATION
  Report Type: 
  Country: None (occurrence: None)
  Receive Date: 20050311
  Receipt Date: 20041102
  Transmission Date: 20051028
  Serious: No
  Sender: FDA-Public Use
  Company Number: 2004-BP-08672BP

PATIENT
  Age: 81 Year
  Sex: Female

DRUGS (6)
  1. SPIRIVA [Suspect]
     Indication: CHRONIC OBSTRUCTIVE PULMONARY DISEASE
     Dosage: 18 MCG (18 MCG),IH
     Route: 055
     Dates: start: 20040530, end: 20040727
  2. SPIRIVA [Suspect]
     Indication: CHRONIC OBSTRUCTIVE PULMONARY DISEASE
     Dosage: 18 MCG (18 MCG),IH
     Route: 055
     Dates: start: 20040717, end: 20040727
  3. FORADIL [Concomitant]
  4. FOSAMAX [Concomitant]
  5. ALBUTEROL SULFATE W/IPRATROPIUM BROMIDE (COMBIVENT) [Concomitant]
  6. COMBIVENT [Concomitant]

REACTIONS (3)
  - CONSTIPATION [None]
  - INSOMNIA [None]
  - ORAL FUNGAL INFECTION [None]
